FAERS Safety Report 13524645 (Version 1)
Quarter: 2017Q2

REPORT INFORMATION
  Report Type: Spontaneous
  Country: US (occurrence: US)
  Receive Date: 20170508
  Receipt Date: 20170508
  Transmission Date: 20170830
  Serious: No
  Sender: FDA-Public Use
  Company Number: US-ROCHE-1054984

PATIENT
  Sex: Female

DRUGS (2)
  1. AVASTIN [Suspect]
     Active Substance: BEVACIZUMAB
     Indication: PRODUCT USED FOR UNKNOWN INDICATION
     Route: 065
  2. LUCENTIS [Concomitant]
     Active Substance: RANIBIZUMAB
     Route: 065

REACTIONS (7)
  - Influenza [Unknown]
  - Tremor [Unknown]
  - Bone pain [Unknown]
  - Eye disorder [Unknown]
  - Muscle twitching [Unknown]
  - Muscular weakness [Unknown]
  - Fatigue [Unknown]
